FAERS Safety Report 23442685 (Version 1)
Quarter: 2024Q1

REPORT INFORMATION
  Report Type: Spontaneous
  Country: DE (occurrence: DE)
  Receive Date: 20240125
  Receipt Date: 20240125
  Transmission Date: 20240410
  Serious: Yes (Death)
  Sender: FDA-Public Use
  Company Number: DE-TEVA-VS-3148801

PATIENT
  Age: 69 Year
  Sex: Male

DRUGS (13)
  1. CISPLATIN [Suspect]
     Active Substance: CISPLATIN
     Indication: Cholangiocarcinoma
     Dosage: ON DAY?1 AND 8
     Route: 065
     Dates: start: 201711, end: 201907
  2. PEMIGATINIB [Suspect]
     Active Substance: PEMIGATINIB
     Indication: Cholangiocarcinoma
     Dosage: FOR 2?WEEKS, FOLLOWED BY 1?WEEK PAUSE
     Route: 065
     Dates: start: 202005
  3. PEMIGATINIB [Suspect]
     Active Substance: PEMIGATINIB
     Indication: Cholangiocarcinoma
     Dosage: FOR 2?WEEKS, FOLLOWED BY 1?WEEK PAUSE
     Route: 065
  4. FLUOROURACIL [Suspect]
     Active Substance: FLUOROURACIL
     Indication: Cholangiocarcinoma
     Dosage: 400?MG/M2 AS BOLUS EVERY 2?WEEKS AS A PART OF  FOLFIRI REGIMEN
     Route: 065
     Dates: start: 202002
  5. FLUOROURACIL [Suspect]
     Active Substance: FLUOROURACIL
     Indication: Cholangiocarcinoma
     Dosage: 3000?MG/M2 AS 48H INFUSION EVERY 2?WEEKS AS A PART OF FOLFOX REGIMEN
     Route: 065
     Dates: start: 201907, end: 202002
  6. FLUOROURACIL [Suspect]
     Active Substance: FLUOROURACIL
     Indication: Cholangiocarcinoma
     Dosage: 400?MG/M2 AS BOLUS EVERY 2?WEEKS AS A PART OF FOLFOX REGIMEN
     Route: 065
     Dates: start: 201907, end: 202002
  7. FLUOROURACIL [Suspect]
     Active Substance: FLUOROURACIL
     Indication: Cholangiocarcinoma
     Dosage: 2400?MG/M2 AS 48H INFUSION EVERY 2?WEEKS AS A PART OF  FOLFIRI REGIMEN
     Route: 065
     Dates: start: 202002
  8. GEMCITABINE [Suspect]
     Active Substance: GEMCITABINE
     Indication: Cholangiocarcinoma
     Dosage: ON DAY?1 AND 8
     Route: 065
     Dates: start: 201711, end: 201907
  9. AZACITIDINE [Suspect]
     Active Substance: AZACITIDINE
     Indication: Acute myeloid leukaemia
     Route: 065
     Dates: start: 202109
  10. OXALIPLATIN [Suspect]
     Active Substance: OXALIPLATIN
     Indication: Cholangiocarcinoma
     Dosage: EVERY 2?WEEKS AS A PART OF FOLFOX REGIMEN
     Route: 065
     Dates: start: 201907, end: 202002
  11. IRINOTECAN [Suspect]
     Active Substance: IRINOTECAN
     Indication: Cholangiocarcinoma
     Dosage: EVERY 2 WEEKS AS A PART OF FOLFIRI REGIMEN
     Route: 065
     Dates: start: 202002
  12. FOLIC ACID [Suspect]
     Active Substance: FOLIC ACID
     Indication: Cholangiocarcinoma
     Dosage: EVERY 2?WEEKS AS A PART OF FOLFOX REGIMEN
     Route: 065
     Dates: start: 201907, end: 202002
  13. FOLIC ACID [Suspect]
     Active Substance: FOLIC ACID
     Indication: Cholangiocarcinoma
     Dosage: EVERY 2?WEEKS AS A PART OF FOLFIRI REGIMEN
     Route: 065
     Dates: start: 202002

REACTIONS (4)
  - Acute myeloid leukaemia [Fatal]
  - Pneumonia [Fatal]
  - Off label use [Fatal]
  - Drug ineffective [Fatal]

NARRATIVE: CASE EVENT DATE: 20210101
